FAERS Safety Report 8172499-9 (Version None)
Quarter: 2012Q1

REPORT INFORMATION
  Report Type: 
  Country: None (occurrence: None)
  Receive Date: 20120227
  Receipt Date: 20120227
  Transmission Date: 20120608
  Serious: Yes (Life-Threatening)
  Sender: FDA-Public Use
  Company Number: None

PATIENT
  Age: 46 Year
  Sex: Female
  Weight: 75.2 kg

DRUGS (3)
  1. AMITRIPTYLINE HCL [Concomitant]
  2. CERTOLIZUMAB [Suspect]
     Indication: RHEUMATOID ARTHRITIS
     Dosage: 400MG
     Dates: end: 20110512
  3. FOLIC ACID [Concomitant]

REACTIONS (10)
  - ABDOMINAL PAIN [None]
  - JAUNDICE [None]
  - NAUSEA [None]
  - COAGULOPATHY [None]
  - ENCEPHALOPATHY [None]
  - MALAISE [None]
  - PYREXIA [None]
  - LIVER TRANSPLANT [None]
  - VOMITING [None]
  - ACUTE HEPATIC FAILURE [None]
